FAERS Safety Report 10100620 (Version 1)
Quarter: 2014Q2

REPORT INFORMATION
  Report Type: Spontaneous
  Country: JP (occurrence: JP)
  Receive Date: 20140423
  Receipt Date: 20140423
  Transmission Date: 20141212
  Serious: Yes (Death, Hospitalization, Other)
  Sender: FDA-Public Use
  Company Number: PHHY2014JP045405

PATIENT
  Sex: Male
  Weight: 68.5 kg

DRUGS (8)
  1. VALPROIC ACID [Suspect]
     Indication: DEPRESSION
     Dosage: 600 MG, DAILY
  2. ZOPICLONE [Suspect]
     Indication: DEPRESSION
     Dosage: 10 MG, DAILY
  3. DIAZEPAM [Suspect]
     Indication: DEPRESSION
     Dosage: 4 MG, TWICE DAILY
  4. FLUVOXAMINE [Suspect]
     Indication: DEPRESSION
     Dosage: 25 MG, TWICE DAILY
  5. FLUNITRAZEPAM [Suspect]
     Indication: DEPRESSION
     Dosage: 2 MG, ONCE DAILY
  6. ZOLPIDEM [Suspect]
     Indication: DEPRESSION
     Dosage: 10 MG, ONCE DAILY
  7. BROTIZOLAM [Suspect]
     Indication: DEPRESSION
     Dosage: 0.25 MG, ONCE DAILY
  8. LITHIUM CARBONATE [Suspect]
     Indication: DEPRESSION
     Dosage: 400 MG, TWICE DAILY

REACTIONS (5)
  - Cardio-respiratory arrest [Fatal]
  - Toxicity to various agents [Unknown]
  - Suicide attempt [Unknown]
  - Intentional overdose [Unknown]
  - Hyperhidrosis [Unknown]
